FAERS Safety Report 16070255 (Version 1)
Quarter: 2019Q1

REPORT INFORMATION
  Report Type: Spontaneous
  Country: US (occurrence: US)
  Receive Date: 20190314
  Receipt Date: 20190314
  Transmission Date: 20190418
  Serious: No
  Sender: FDA-Public Use
  Company Number: US-B.I. PHARMACEUTICALS,INC./RIDGEFIELD-2019-BI-010141

PATIENT
  Sex: Female

DRUGS (6)
  1. PRADAXA [Suspect]
     Active Substance: DABIGATRAN ETEXILATE MESYLATE
     Indication: ATRIAL FIBRILLATION
     Route: 048
     Dates: start: 2010
  2. BENICAR [Concomitant]
     Active Substance: OLMESARTAN MEDOXOMIL
     Indication: HYPERTENSION
     Dosage: FORM STRENGTH: 5MG; FORMULATION: TABLET
     Route: 048
     Dates: start: 2014
  3. DIGOXIN. [Concomitant]
     Active Substance: DIGOXIN
     Dosage: EVERY OTHER DAY??1/2 TABLET??ONCE DAILY;  FORM STRENGTH: 125MCG; FORMULATION: TABLET
     Route: 048
     Dates: start: 2014
  4. DILTIAZEM. [Concomitant]
     Active Substance: DILTIAZEM
     Indication: ATRIAL FIBRILLATION
     Dosage: FORM STRENGTH: 240MG; FORMULATION: CAPSULE
     Route: 048
     Dates: start: 2014
  5. DIGOXIN. [Concomitant]
     Active Substance: DIGOXIN
     Indication: ATRIAL FIBRILLATION
     Dosage: EVERY OTHER DAY , ONE TABLET ONCE DAILY;  FORM STRENGTH: 125MCG; FORMULATION: TABLET
     Route: 048
     Dates: start: 2014
  6. CELEBREX [Concomitant]
     Active Substance: CELECOXIB
     Indication: SWELLING
     Dosage: FORM STRENGTH: 100MG; FORMULATION: CAPSULE
     Route: 048
     Dates: start: 2016

REACTIONS (1)
  - Arthritis [Not Recovered/Not Resolved]

NARRATIVE: CASE EVENT DATE: 2014
